FAERS Safety Report 16810038 (Version 1)
Quarter: 2019Q3

REPORT INFORMATION
  Report Type: Spontaneous
  Country: GB (occurrence: GB)
  Receive Date: 20190916
  Receipt Date: 20190916
  Transmission Date: 20191005
  Serious: Yes (Other)
  Sender: FDA-Public Use
  Company Number: GB-MYLANLABS-2019M1085417

PATIENT
  Age: 24 Year
  Sex: Female

DRUGS (1)
  1. CITALOPRAM [Suspect]
     Active Substance: CITALOPRAM HYDROBROMIDE
     Indication: ANXIETY
     Dosage: 20 MILLIGRAM, QD
     Route: 048
     Dates: start: 20190327, end: 20190329

REACTIONS (5)
  - Tremor [Recovered/Resolved]
  - Serotonin syndrome [Recovering/Resolving]
  - Bruxism [Recovering/Resolving]
  - Nausea [Recovering/Resolving]
  - Cold sweat [Recovering/Resolving]

NARRATIVE: CASE EVENT DATE: 20190329
